FAERS Safety Report 8994768 (Version 1)
Quarter: 2012Q4

REPORT INFORMATION
  Report Type: Spontaneous
  Country: US (occurrence: None)
  Receive Date: 20121221
  Receipt Date: 20121221
  Transmission Date: 20130627
  Serious: Yes (Hospitalization)
  Sender: FDA-Public Use
  Company Number: AMAG201203157

PATIENT
  Sex: Male

DRUGS (1)
  1. FERAHEME (FERUMOXYTOL) INJECTION, 510MG [Suspect]
     Dosage: 9 ml (270mg) sigle
     Route: 042
     Dates: start: 20121212, end: 20121212

REACTIONS (10)
  - Pulse pressure decreased [None]
  - Unresponsive to stimuli [None]
  - Tremor [None]
  - Hypotension [None]
  - Salivary hypersecretion [None]
  - Fatigue [None]
  - Nausea [None]
  - Malaise [None]
  - Flushing [None]
  - Feeling hot [None]
